FAERS Safety Report 9377255 (Version 1)
Quarter: 2013Q3

REPORT INFORMATION
  Report Type: Spontaneous
  Country: DE (occurrence: DE)
  Receive Date: 20130701
  Receipt Date: 20130701
  Transmission Date: 20140515
  Serious: Yes (Hospitalization)
  Sender: FDA-Public Use
  Company Number: DE-ROCHE-1236092

PATIENT
  Age: 22 Year
  Sex: Female
  Weight: 34 kg

DRUGS (6)
  1. ROACTEMRA [Suspect]
     Indication: JUVENILE IDIOPATHIC ARTHRITIS
     Route: 042
     Dates: start: 201205
  2. PREDNISONE [Concomitant]
     Indication: JUVENILE IDIOPATHIC ARTHRITIS
     Route: 048
     Dates: start: 1995
  3. BISOPROLOL [Concomitant]
     Indication: TACHYCARDIA
     Route: 048
  4. INDOMETACIN [Concomitant]
     Indication: PAIN
     Route: 048
     Dates: start: 1995
  5. HYDROCHLOROTHIAZIDE [Concomitant]
     Indication: HYPERTENSION
     Route: 048
  6. ESOMEPRAZOLE [Concomitant]
     Indication: ABDOMINAL PAIN UPPER
     Route: 048

REACTIONS (3)
  - Juvenile idiopathic arthritis [Recovered/Resolved]
  - C-reactive protein increased [Recovered/Resolved]
  - Bronchitis [Recovered/Resolved]
